FAERS Safety Report 4555266-4 (Version None)
Quarter: 2004Q4

REPORT INFORMATION
  Report Type: 
  Country: None (occurrence: None)
  Receive Date: 20041227
  Receipt Date: 20040909
  Transmission Date: 20050328
  Serious: No
  Sender: FDA-Public Use
  Company Number: 04P-163-0272767-00

PATIENT
  Age: 65 Year
  Sex: Female

DRUGS (6)
  1. HUMIRA [Suspect]
     Indication: RHEUMATOID ARTHRITIS
     Dosage: 40 MG, 1 IN 2 WK, SUBCUTANEOUS
     Route: 058
     Dates: start: 20040628
  2. PREDNISONE [Concomitant]
  3. HYDROCO-APAP [Concomitant]
  4. MELOXICAM [Concomitant]
  5. ESTROGENS CONJUGATED [Concomitant]
  6. ZOLPIDEM TARTRATE [Concomitant]

REACTIONS (3)
  - CONDITION AGGRAVATED [None]
  - PAIN EXACERBATED [None]
  - SWELLING [None]
